FAERS Safety Report 10690996 (Version 1)
Quarter: 2015Q1

REPORT INFORMATION
  Report Type: Spontaneous
  Country: US (occurrence: None)
  Receive Date: 20150102
  Receipt Date: 20150102
  Transmission Date: 20150720
  Serious: No
  Sender: FDA-Public Use
  Company Number: 1049090-2014-00551

PATIENT
  Sex: Female

DRUGS (4)
  1. SENSI CARE MOISTURIZING BODY [Suspect]
     Active Substance: DIMETHICONE\PETROLATUM
     Dosage: APPLY AS NEEDED FOR SKIN PROTECTION
  2. SENSI CARE MOISTURIZING BODY [Suspect]
     Active Substance: DIMETHICONE\PETROLATUM
     Indication: CHAPPED LIPS
     Dosage: APPLY AS NEEDED FOR SKIN PROTECTION
  3. SENSI CARE MOISTURIZING BODY [Suspect]
     Active Substance: DIMETHICONE\PETROLATUM
     Indication: PROPHYLAXIS
     Dosage: APPLY AS NEEDED FOR SKIN PROTECTION
  4. SENSI CARE MOISTURIZING BODY [Suspect]
     Active Substance: DIMETHICONE\PETROLATUM
     Indication: DERMATITIS DIAPER
     Dosage: APPLY AS NEEDED FOR SKIN PROTECTION

REACTIONS (3)
  - Erythema [None]
  - Wound [None]
  - Wound drainage [None]

NARRATIVE: CASE EVENT DATE: 20141010
